FAERS Safety Report 22996414 (Version 3)
Quarter: 2023Q4

REPORT INFORMATION
  Report Type: Spontaneous
  Country: PL (occurrence: PL)
  Receive Date: 20230928
  Receipt Date: 20231104
  Transmission Date: 20240110
  Serious: Yes (Death, Life-Threatening, Hospitalization, Other)
  Sender: FDA-Public Use
  Company Number: PL-CELLTRION HEALTHCARE HUNGARY KFT-2023PL015981

PATIENT
  Age: 70 Year
  Sex: Female
  Weight: 77 kg

DRUGS (2)
  1. BENDAMUSTINE HYDROCHLORIDE [Suspect]
     Active Substance: BENDAMUSTINE HYDROCHLORIDE
     Indication: Chronic lymphocytic leukaemia
     Dosage: 90 MILLIGRAM/SQ. METER, CYCLICAL (90 MG/M2, EVERY 28 DAYS (CYCLICAL)
     Route: 042
     Dates: start: 20221130, end: 20230727
  2. RITUXIMAB [Suspect]
     Active Substance: RITUXIMAB
     Indication: Chronic lymphocytic leukaemia
     Dosage: 375 MILLIGRAM/SQ. METER, CYCLICAL (375 MG/M2, EVERY 28 DAYS (CYCLICAL)
     Route: 042
     Dates: start: 20221130, end: 20230727

REACTIONS (3)
  - Anaemia [Fatal]
  - Pneumonia [Fatal]
  - Condition aggravated [Unknown]

NARRATIVE: CASE EVENT DATE: 20230803
